FAERS Safety Report 18595958 (Version 1)
Quarter: 2020Q4

REPORT INFORMATION
  Report Type: Spontaneous
  Country: US (occurrence: US)
  Receive Date: 20201209
  Receipt Date: 20201209
  Transmission Date: 20210114
  Serious: Yes (Other)
  Sender: FDA-Public Use
  Company Number: None

PATIENT
  Age: 84 Year
  Sex: Female
  Weight: 59.4 kg

DRUGS (14)
  1. TIZANIDINE HCL [Concomitant]
     Active Substance: TIZANIDINE HYDROCHLORIDE
  2. CALCIUM + D [Concomitant]
     Active Substance: CALCIUM\VITAMIN D
  3. BACLOFEN. [Concomitant]
     Active Substance: BACLOFEN
  4. ASPIRIN 81 [Concomitant]
     Active Substance: ASPIRIN
  5. PEMBROLIZUMAB. [Concomitant]
     Active Substance: PEMBROLIZUMAB
  6. PRESERVISION AREDS [Concomitant]
     Active Substance: MINERALS\VITAMINS
  7. SYNTHROID [Concomitant]
     Active Substance: LEVOTHYROXINE SODIUM
  8. TELMISARTAN. [Concomitant]
     Active Substance: TELMISARTAN
  9. MULTIVITAMIN ADULT [Concomitant]
  10. VITAMIN D3 [Concomitant]
     Active Substance: CHOLECALCIFEROL
  11. INLYTA [Suspect]
     Active Substance: AXITINIB
     Indication: RENAL CANCER
     Route: 048
     Dates: start: 20201102, end: 20201209
  12. REFRESH GEL [Concomitant]
  13. FUROSEMIDE. [Concomitant]
     Active Substance: FUROSEMIDE
  14. FLECTOR [Concomitant]
     Active Substance: DICLOFENAC EPOLAMINE

REACTIONS (1)
  - Hospice care [None]

NARRATIVE: CASE EVENT DATE: 20201209
